FAERS Safety Report 19585758 (Version 4)
Quarter: 2021Q3

REPORT INFORMATION
  Report Type: Spontaneous
  Country: FR (occurrence: FR)
  Receive Date: 20210720
  Receipt Date: 20210909
  Transmission Date: 20211014
  Serious: Yes (Hospitalization, Other)
  Sender: FDA-Public Use
  Company Number: FR-BAUSCH-BL-2021-025151

PATIENT
  Age: 73 Year
  Sex: Male
  Weight: 106 kg

DRUGS (15)
  1. VALACYCLOVIR [Suspect]
     Active Substance: VALACYCLOVIR HYDROCHLORIDE
     Indication: INFECTION
     Route: 042
     Dates: start: 20210521, end: 20210523
  2. METRONIDAZOLE. [Suspect]
     Active Substance: METRONIDAZOLE
     Indication: INFECTION
     Dosage: 1500 MG, QD
     Route: 042
     Dates: start: 20210521, end: 20210523
  3. INSULIN [Concomitant]
     Active Substance: INSULIN NOS
     Indication: PRODUCT USED FOR UNKNOWN INDICATION
  4. FLUCORTAC [Suspect]
     Active Substance: FLUDROCORTISONE ACETATE
     Indication: INFECTION
     Dosage: 50 MICROGRAM, QD
     Route: 048
     Dates: start: 20210521, end: 20210521
  5. HYDROCORTISONE. [Suspect]
     Active Substance: HYDROCORTISONE
     Indication: INFECTION
     Route: 042
     Dates: start: 20210521, end: 20210521
  6. MEROPENEM. [Suspect]
     Active Substance: MEROPENEM
     Indication: INFECTION
     Dosage: 6 G, QD
     Route: 042
     Dates: start: 20210521, end: 20210525
  7. KONAKION [Suspect]
     Active Substance: PHYTONADIONE
     Indication: PRODUCT USED FOR UNKNOWN INDICATION
     Dosage: 10 MG, QD
     Route: 042
     Dates: start: 20210521, end: 20210521
  8. NORADRENALINE MYLAN [Suspect]
     Active Substance: NOREPINEPHRINE\NOREPINEPHRINE BITARTRATE
     Indication: HYPOTENSION
     Route: 042
     Dates: start: 20210521, end: 20210521
  9. PANTOPRAZOLE [Concomitant]
     Active Substance: PANTOPRAZOLE
     Indication: PRODUCT USED FOR UNKNOWN INDICATION
  10. FOSFOCIN [FOSFOMYCIN CALCIUM] [Suspect]
     Active Substance: FOSFOMYCIN CALCIUM
     Indication: INFECTION
     Route: 042
     Dates: start: 20210521, end: 20210523
  11. ROVAMYCINE [Suspect]
     Active Substance: SPIRAMYCIN
     Indication: INFECTION
     Dosage: 1.5 MIU, Q8H
     Route: 042
     Dates: start: 20210521, end: 20210523
  12. PARACETAMOL [Concomitant]
     Active Substance: ACETAMINOPHEN
     Indication: PRODUCT USED FOR UNKNOWN INDICATION
  13. ACICLOVIR [Suspect]
     Active Substance: ACYCLOVIR
     Indication: INFECTION
     Dosage: 3300 MG, TID
     Route: 042
     Dates: start: 20210521, end: 20210523
  14. FUMAFER [Concomitant]
     Active Substance: FERROUS FUMARATE
     Indication: PRODUCT USED FOR UNKNOWN INDICATION
  15. LEVOTHYROX [Concomitant]
     Active Substance: LEVOTHYROXINE
     Indication: PRODUCT USED FOR UNKNOWN INDICATION

REACTIONS (1)
  - Epileptic encephalopathy [Recovered/Resolved]

NARRATIVE: CASE EVENT DATE: 20210522
